FAERS Safety Report 7565657-5 (Version None)
Quarter: 2011Q2

REPORT INFORMATION
  Report Type: 
  Country: None (occurrence: None)
  Receive Date: 20110616
  Receipt Date: 20110610
  Transmission Date: 20111010
  Serious: Yes (Death)
  Sender: FDA-Public Use
  Company Number: 1000021572

PATIENT
  Sex: Male

DRUGS (1)
  1. LEXAPRO [Suspect]
     Dosage: TRANSPLACENTAL
     Route: 064
     Dates: end: 20070925

REACTIONS (7)
  - ATRIAL SEPTAL DEFECT [None]
  - PULMONARY VALVE STENOSIS [None]
  - HYPOPLASTIC RIGHT HEART SYNDROME [None]
  - MATERNAL DRUGS AFFECTING FOETUS [None]
  - CONGENITAL TRICUSPID VALVE ATRESIA [None]
  - VENTRICULAR SEPTAL DEFECT [None]
  - CONGENITAL ANOMALY [None]
